FAERS Safety Report 4268139-1 (Version None)
Quarter: 2004Q1

REPORT INFORMATION
  Report Type: 
  Country: None (occurrence: None)
  Receive Date: 20040109
  Receipt Date: 20040109
  Transmission Date: 20041129
  Serious: Yes (Life-Threatening)
  Sender: FDA-Public Use
  Company Number: None

PATIENT
  Age: 87 Year
  Sex: Female

DRUGS (2)
  1. HEPARIN [Suspect]
  2. WARFARIN SODIUM [Suspect]

REACTIONS (9)
  - ACTIVATED PARTIAL THROMBOPLASTIN TIME SHORTENED [None]
  - AREFLEXIA [None]
  - BRAIN SCAN ABNORMAL [None]
  - CEREBRAL HAEMORRHAGE [None]
  - CONDITION AGGRAVATED [None]
  - EYE MOVEMENT DISORDER [None]
  - HYDROCEPHALUS [None]
  - LABORATORY TEST ABNORMAL [None]
  - PUPIL FIXED [None]
